FAERS Safety Report 5809909-5 (Version None)
Quarter: 2008Q3

REPORT INFORMATION
  Report Type: 
  Country: None (occurrence: None)
  Receive Date: 20080715
  Receipt Date: 20080710
  Transmission Date: 20090109
  Serious: Yes (Other)
  Sender: FDA-Public Use
  Company Number: GB-TEVA-174212ISR

PATIENT
  Age: 33 Year
  Sex: Male

DRUGS (2)
  1. PREDNISOLONE [Suspect]
     Dates: start: 20080531, end: 20080604
  2. SERETIDE [Suspect]
     Indication: ASTHMA
     Route: 055
     Dates: start: 20080531, end: 20080602

REACTIONS (1)
  - URTICARIA [None]
